FAERS Safety Report 8175860-1 (Version None)
Quarter: 2012Q1

REPORT INFORMATION
  Report Type: 
  Country: None (occurrence: None)
  Receive Date: 20120301
  Receipt Date: 20120220
  Transmission Date: 20120608
  Serious: Yes (Hospitalization)
  Sender: FDA-Public Use
  Company Number: US-MPIJNJ-2012-01189

PATIENT
  Sex: Female
  Weight: 29.252 kg

DRUGS (8)
  1. IRINOTECAN HCL [Suspect]
     Indication: NEUROBLASTOMA
     Dosage: 44 MG, CYCLIC
     Route: 042
     Dates: start: 20110718
  2. BACTRIM [Concomitant]
     Indication: PRODUCT USED FOR UNKNOWN INDICATION
     Dosage: UNK
     Dates: start: 20110710
  3. ZOFRAN [Concomitant]
     Indication: PRODUCT USED FOR UNKNOWN INDICATION
  4. CEFIXIME [Concomitant]
     Indication: PRODUCT USED FOR UNKNOWN INDICATION
     Dosage: UNK
     Dates: start: 20110718
  5. VELCADE [Suspect]
     Indication: NEUROBLASTOMA
     Dosage: 1.2 MG, CYCLIC
     Route: 042
     Dates: start: 20110718
  6. CEFPODOXIME PROXETIL [Concomitant]
     Indication: PRODUCT USED FOR UNKNOWN INDICATION
  7. PREVACID [Concomitant]
     Indication: PRODUCT USED FOR UNKNOWN INDICATION
  8. MIRALAX [Concomitant]
     Indication: PRODUCT USED FOR UNKNOWN INDICATION

REACTIONS (1)
  - VARICELLA [None]
